FAERS Safety Report 4571877-4 (Version None)
Quarter: 2005Q1

REPORT INFORMATION
  Report Type: 
  Country: None (occurrence: None)
  Receive Date: 20050207
  Receipt Date: 20041109
  Transmission Date: 20050727
  Serious: Yes (Other)
  Sender: FDA-Public Use
  Company Number: PHEH2004US12112

PATIENT
  Age: 83 Year
  Sex: Female

DRUGS (12)
  1. FOSAMAX [Concomitant]
  2. LEVOXYL [Concomitant]
  3. OSCAL [Concomitant]
  4. GAMMA-GLOBULIN ^BEHRINGWERKE^ [Concomitant]
  5. LIDEX [Concomitant]
  6. HYTRIN [Concomitant]
     Dosage: 4 MG, BID
  7. HYDRALAZINE [Concomitant]
     Dosage: 25 MG, QD
  8. PRAZOSIN HCL [Concomitant]
     Dosage: 1 MG, QHS
  9. TENORMIN [Concomitant]
  10. DIOVAN [Suspect]
     Dosage: 160 MG, BID
     Route: 048
     Dates: start: 20041001
  11. DIOVAN [Suspect]
     Dosage: 320 MG, BID
     Dates: start: 20040101, end: 20040101
  12. DIOVAN [Suspect]
     Dosage: 160 MG, BID

REACTIONS (14)
  - ACCIDENTAL OVERDOSE [None]
  - ACTINIC KERATOSIS [None]
  - ASTHENIA [None]
  - BIOPSY SKIN [None]
  - BLOOD PRESSURE INCREASED [None]
  - DIZZINESS [None]
  - ERYTHEMA [None]
  - EXTRASYSTOLES [None]
  - HEART RATE INCREASED [None]
  - HEART RATE IRREGULAR [None]
  - LICHEN PLANUS [None]
  - MEDICATION ERROR [None]
  - PRECANCEROUS SKIN LESION [None]
  - SKIN DISORDER [None]
